FAERS Safety Report 16683051 (Version 1)
Quarter: 2019Q3

REPORT INFORMATION
  Report Type: Spontaneous
  Country: US (occurrence: US)
  Receive Date: 20190807
  Receipt Date: 20190807
  Transmission Date: 20191007
  Serious: No
  Sender: FDA-Public Use
  Company Number: None

PATIENT
  Age: 61 Year
  Sex: Male
  Weight: 99 kg

DRUGS (1)
  1. BUPROPION HYDROCHLORIDE SR [Suspect]
     Active Substance: BUPROPION HYDROCHLORIDE
     Indication: NICOTINE DEPENDENCE
     Dosage: ?          QUANTITY:1 TABLET(S);?
     Route: 048
     Dates: start: 20190306, end: 20190322

REACTIONS (6)
  - Irritability [None]
  - Drug ineffective [None]
  - Product substitution issue [None]
  - Manufacturing materials issue [None]
  - Nicotine dependence [None]
  - Mood altered [None]

NARRATIVE: CASE EVENT DATE: 20190306
